FAERS Safety Report 8557111-9 (Version None)
Quarter: 2012Q3

REPORT INFORMATION
  Report Type: 
  Country: None (occurrence: None)
  Receive Date: 20120801
  Receipt Date: 20120724
  Transmission Date: 20120928
  Serious: Yes (Hospitalization)
  Sender: FDA-Public Use
  Company Number: US-UCBSA-062549

PATIENT
  Age: 51 Year
  Sex: Female
  Weight: 63 kg

DRUGS (3)
  1. ACETYLCYSTEINE [Suspect]
     Indication: OVERDOSE
     Route: 042
     Dates: start: 20120704, end: 20120704
  2. AMITRIPTLINE HYDROCHLORIDE TAB [Concomitant]
  3. ACETAMINOPHEN AND CODEINE PHOSPHATE [Suspect]

REACTIONS (4)
  - RASH [None]
  - OVERDOSE [None]
  - DYSPNOEA [None]
  - ERYTHEMA [None]
